FAERS Safety Report 4876224-6 (Version None)
Quarter: 2005Q4

REPORT INFORMATION
  Report Type: 
  Country: None (occurrence: None)
  Receive Date: 20051207
  Receipt Date: 20050805
  Transmission Date: 20060501
  Serious: Yes (Hospitalization)
  Sender: FDA-Public Use
  Company Number: 413115

PATIENT
  Age: 41 Year
  Sex: Female

DRUGS (1)
  1. VALIUM [Suspect]
     Dosage: ORAL
     Route: 048

REACTIONS (1)
  - DEPRESSION [None]
